FAERS Safety Report 12987815 (Version 1)
Quarter: 2016Q4

REPORT INFORMATION
  Report Type: Report from Study
  Country: US (occurrence: US)
  Receive Date: 20161130
  Receipt Date: 20161130
  Transmission Date: 20170207
  Serious: No
  Sender: FDA-Public Use
  Company Number: US-AMGEN-USASP2016159513

PATIENT
  Age: 63 Year
  Sex: Male

DRUGS (3)
  1. INSULIN [Concomitant]
     Active Substance: INSULIN NOS
  2. LOVENOX [Concomitant]
     Active Substance: ENOXAPARIN SODIUM
     Indication: ANTIPHOSPHOLIPID SYNDROME
  3. ENBREL [Suspect]
     Active Substance: ETANERCEPT
     Indication: BEHCET^S SYNDROME
     Dosage: 50 MG, UNK
     Route: 065
     Dates: start: 201607

REACTIONS (7)
  - Wrong technique in product usage process [Unknown]
  - Off label use [Unknown]
  - Fear of injection [Unknown]
  - Skin induration [Unknown]
  - Injection site pain [Unknown]
  - Corrective lens user [Unknown]
  - Screaming [Unknown]

NARRATIVE: CASE EVENT DATE: 2016
